FAERS Safety Report 7592336-0 (Version None)
Quarter: 2011Q2

REPORT INFORMATION
  Report Type: 
  Country: None (occurrence: None)
  Receive Date: 20110628
  Receipt Date: 20110624
  Transmission Date: 20111010
  Serious: Yes (Life-Threatening, Hospitalization)
  Sender: FDA-Public Use
  Company Number: 2011SP025193

PATIENT
  Age: 80 Year
  Sex: Female

DRUGS (8)
  1. ASPIRIN [Concomitant]
  2. PLAVIX [Concomitant]
  3. ZAROXOLYN [Concomitant]
  4. LIPITOR [Concomitant]
  5. LUMIGAN [Concomitant]
  6. BUPROPION HCL [Concomitant]
  7. INTEGRILIN [Suspect]
     Indication: PERCUTANEOUS CORONARY INTERVENTION
     Dates: start: 20110504
  8. PIVALIRUDIN (BIVALIRUDIN) [Concomitant]

REACTIONS (3)
  - PLATELET COUNT DECREASED [None]
  - RENAL FAILURE [None]
  - DIALYSIS [None]
